FAERS Safety Report 8926505 (Version 2)
Quarter: 2012Q4

REPORT INFORMATION
  Report Type: 
  Country: CH (occurrence: CH)
  Receive Date: 20121127
  Receipt Date: 20121211
  Transmission Date: 20130627
  Serious: Yes (Hospitalization)
  Sender: FDA-Public Use
  Company Number: CH-ELI_LILLY_AND_COMPANY-CH201211006752

PATIENT
  Age: 63 Year
  Sex: Male
  Weight: 73 kg

DRUGS (3)
  1. EFIENT [Suspect]
     Indication: ACUTE MYOCARDIAL INFARCTION
     Dosage: 60 mg, unknown
     Route: 065
     Dates: start: 20101208
  2. EFIENT [Suspect]
     Dosage: 10 mg, unknown
     Route: 065
  3. AAS [Concomitant]

REACTIONS (1)
  - Gastrointestinal haemorrhage [Recovered/Resolved]
